FAERS Safety Report 21715739 (Version 1)
Quarter: 2022Q4

REPORT INFORMATION
  Report Type: Spontaneous
  Country: NO (occurrence: NO)
  Receive Date: 20221212
  Receipt Date: 20221212
  Transmission Date: 20230112
  Serious: Yes (Hospitalization, Other)
  Sender: FDA-Public Use
  Company Number: NO-NALPROPION PHARMACEUTICALS INC.-NO-2022CUR024004

PATIENT
  Age: 23 Year
  Sex: Female

DRUGS (3)
  1. BUPROPION HYDROCHLORIDE\NALTREXONE HYDROCHLORIDE [Suspect]
     Active Substance: BUPROPION HYDROCHLORIDE\NALTREXONE HYDROCHLORIDE
     Indication: Overweight
     Dosage: STRENGTH 8/90 MG, FOLLOWED THE RECOMMENDED DOSAGE AND GRADUAL ESCALATION (PREVIOUS ATTEMPT, WITHOUT
     Route: 065
  2. BUPROPION HYDROCHLORIDE\NALTREXONE HYDROCHLORIDE [Suspect]
     Active Substance: BUPROPION HYDROCHLORIDE\NALTREXONE HYDROCHLORIDE
     Dosage: STRENGTH 8/90 MG, UNSPECIFIED DOSE AND FREQUENCY
     Route: 065
     Dates: start: 20221025, end: 20221108
  3. MELLEVA [ETHINYLESTRADIOL;LEVONORGESTREL] [Concomitant]
     Indication: Contraception
     Dosage: 1 TABLET MORNING FOR 21 DAYS, THEN 7 DAYS PAUSE.

REACTIONS (8)
  - Phonophobia [Recovering/Resolving]
  - Idiopathic intracranial hypertension [Recovering/Resolving]
  - Papilloedema [Recovering/Resolving]
  - Vision blurred [Recovered/Resolved]
  - Photophobia [Recovering/Resolving]
  - Eye pain [Recovering/Resolving]
  - Headache [Recovering/Resolving]
  - Wrong dose [Recovering/Resolving]

NARRATIVE: CASE EVENT DATE: 20221025
